FAERS Safety Report 5972093-1 (Version None)
Quarter: 2008Q4

REPORT INFORMATION
  Report Type: 
  Country: None (occurrence: None)
  Receive Date: 20081201
  Receipt Date: 20080609
  Transmission Date: 20090506
  Serious: No
  Sender: FDA-Public Use
  Company Number: US-TEVA-171428USA

PATIENT
  Sex: Female

DRUGS (4)
  1. SALBUTAMOL SULFATE INHALATION, 0.09 MG [Suspect]
     Route: 055
  2. ALBUTEROL SULFATE [Concomitant]
  3. ORCIPRENALINE SULFATE [Concomitant]
  4. LEVOSALBUTAMOL [Concomitant]
     Indication: ASTHMA
     Dosage: 90 UG: PRN; INHALATION
     Route: 055
     Dates: start: 20080501, end: 20080501

REACTIONS (3)
  - ASTHMA [None]
  - HYPERSENSITIVITY [None]
  - LYMPHADENOPATHY [None]
